FAERS Safety Report 21037027 (Version 1)
Quarter: 2022Q3

REPORT INFORMATION
  Report Type: Spontaneous
  Country: PT (occurrence: PT)
  Receive Date: 20220702
  Receipt Date: 20220702
  Transmission Date: 20221027
  Serious: Yes (Hospitalization, Congenital Anomaly, Other)
  Sender: FDA-Public Use
  Company Number: None

PATIENT
  Age: 1 Year
  Sex: Female
  Weight: 1 kg

DRUGS (4)
  1. TACROLIMUS [Suspect]
     Active Substance: TACROLIMUS
     Indication: Chronic hepatitis B
     Dosage: UNKNOWN
  2. TACROLIMUS [Suspect]
     Active Substance: TACROLIMUS
     Indication: Glycogen storage disease type I
     Dosage: UNKNOWN
  3. LAMIVUDINE [Suspect]
     Active Substance: LAMIVUDINE
     Indication: Glycogen storage disease type I
     Dosage: UNKNOWN
  4. LAMIVUDINE [Suspect]
     Active Substance: LAMIVUDINE
     Indication: Chronic hepatitis B
     Dosage: UNKNOWN

REACTIONS (18)
  - Small for dates baby [Unknown]
  - Foetal growth restriction [Unknown]
  - Foetal exposure during pregnancy [Unknown]
  - Cytogenetic abnormality [Unknown]
  - High-pitched crying [Unknown]
  - Product use in unapproved indication [Unknown]
  - Congenital musculoskeletal disorder of skull [Unknown]
  - Umbilical hernia [Unknown]
  - Hypertelorism [Unknown]
  - Congenital nose malformation [Unknown]
  - Atrial septal defect [Unknown]
  - Micrognathia [Unknown]
  - Congenital musculoskeletal disorder of spine [Unknown]
  - Foot deformity [Unknown]
  - Ear malformation [Unknown]
  - Fontanelle bulging [Unknown]
  - Congenital foot malformation [Unknown]
  - Premature baby [Unknown]
